FAERS Safety Report 7265143-6 (Version None)
Quarter: 2011Q1

REPORT INFORMATION
  Report Type: 
  Country: None (occurrence: None)
  Receive Date: 20110131
  Receipt Date: 20110125
  Transmission Date: 20110831
  Serious: Yes (Life-Threatening, Other)
  Sender: FDA-Public Use
  Company Number: PHHY2011AR05559

PATIENT
  Sex: Female

DRUGS (1)
  1. EXFORGE [Suspect]
     Indication: HYPERTENSION
     Dosage: VALSARTAN 160MG AND  AMLODIPINE 5 MG (1 TABLET DAILY)
     Route: 048

REACTIONS (12)
  - INSOMNIA [None]
  - AGGRESSION [None]
  - PAIN [None]
  - FLUSHING [None]
  - CONSTIPATION [None]
  - VOMITING [None]
  - DIZZINESS [None]
  - FEELING ABNORMAL [None]
  - BODY TEMPERATURE INCREASED [None]
  - CYSTITIS [None]
  - SYNCOPE [None]
  - EMOTIONAL DISORDER [None]
